FAERS Safety Report 7903560-9 (Version None)
Quarter: 2011Q4

REPORT INFORMATION
  Report Type: 
  Country: None (occurrence: None)
  Receive Date: 20111109
  Receipt Date: 20111109
  Transmission Date: 20120403
  Serious: Yes (Hospitalization)
  Sender: FDA-Public Use
  Company Number: None

PATIENT
  Age: 29 Year
  Sex: Male
  Weight: 93.44 kg

DRUGS (1)
  1. SUCCINYLCHOLINE CHLORIDE [Suspect]
     Indication: MUSCLE RELAXANT THERAPY
     Dosage: 100 MG
     Route: 040
     Dates: start: 20111104, end: 20111104

REACTIONS (3)
  - PULMONARY OEDEMA [None]
  - DRUG INEFFECTIVE [None]
  - PNEUMONIA ASPIRATION [None]
